FAERS Safety Report 6934063-6 (Version None)
Quarter: 2010Q3

REPORT INFORMATION
  Report Type: 
  Country: None (occurrence: None)
  Receive Date: 20100820
  Receipt Date: 20100812
  Transmission Date: 20110219
  Serious: Yes (Hospitalization, Other)
  Sender: FDA-Public Use
  Company Number: US-MPIJNJ-2010-04070

PATIENT
  Sex: Male
  Weight: 78.821 kg

DRUGS (4)
  1. VELCADE [Suspect]
     Indication: MULTIPLE MYELOMA
     Dosage: UNK
     Dates: start: 20080901, end: 20090801
  2. MELPHALAN [Concomitant]
     Indication: MULTIPLE MYELOMA
     Dosage: UNK
     Dates: start: 20080901, end: 20090801
  3. PREDNISONE [Concomitant]
     Indication: PRODUCT USED FOR UNKNOWN INDICATION
     Dosage: UNK
     Dates: start: 20080901, end: 20090801
  4. ZOMETA [Concomitant]
     Indication: MULTIPLE MYELOMA
     Dosage: UNK

REACTIONS (4)
  - ACUTE MYELOID LEUKAEMIA [None]
  - ASPERGILLOSIS [None]
  - IIIRD NERVE PARALYSIS [None]
  - LEUKAEMIA CUTIS [None]
